FAERS Safety Report 25355998 (Version 1)
Quarter: 2025Q2

REPORT INFORMATION
  Report Type: Spontaneous
  Country: CN (occurrence: CN)
  Receive Date: 20250525
  Receipt Date: 20250525
  Transmission Date: 20250717
  Serious: Yes (Hospitalization, Other)
  Sender: PRINSTON PHARMACEUTICAL
  Company Number: CN-PRINSTON PHARMACEUTICAL INC.-2025PRN00179

PATIENT
  Age: 41 Year
  Sex: Male

DRUGS (2)
  1. AMPHETAMINE [Suspect]
     Active Substance: AMPHETAMINE
     Dates: start: 2015
  2. AMPHETAMINE [Suspect]
     Active Substance: AMPHETAMINE
     Dates: end: 201901

REACTIONS (2)
  - Pulmonary hypertension [Recovered/Resolved]
  - Drug abuse [Unknown]

NARRATIVE: CASE EVENT DATE: 20170801
